FAERS Safety Report 15995174 (Version 1)
Quarter: 2019Q1

REPORT INFORMATION
  Report Type: Spontaneous
  Country: US (occurrence: US)
  Receive Date: 20190128
  Receipt Date: 20190128
  Transmission Date: 20190418
  Serious: Yes (Hospitalization)
  Sender: FDA-Public Use
  Company Number: None

PATIENT
  Age: 52 Year
  Sex: Female

DRUGS (1)
  1. STELARA [Suspect]
     Active Substance: USTEKINUMAB
     Indication: POLYARTHRITIS
     Dosage: ?          OTHER FREQUENCY:W 0 AND 4;?HELD
     Route: 048
     Dates: start: 20181113

REACTIONS (1)
  - Pneumonia [None]
